FAERS Safety Report 5356485-X (Version None)
Quarter: 2007Q2

REPORT INFORMATION
  Report Type: 
  Country: None (occurrence: None)
  Receive Date: 20070530
  Receipt Date: 20070110
  Transmission Date: 20071010
  Serious: Yes (Hospitalization)
  Sender: FDA-Public Use
  Company Number: US200609003698

PATIENT
  Age: 37 Year
  Sex: Female
  Weight: 134.7 kg

DRUGS (7)
  1. ZYPREXA [Suspect]
     Dosage: 20 MG
     Dates: start: 20010101
  2. HYZAAR [Concomitant]
  3. TOPROL-XL [Concomitant]
  4. LEXAPRO [Concomitant]
  5. PAMELOR [Concomitant]
  6. WELLBUTRIN [Concomitant]
  7. TEGRETOL [Concomitant]

REACTIONS (1)
  - DIABETES MELLITUS [None]
